FAERS Safety Report 10267925 (Version 1)
Quarter: 2014Q2

REPORT INFORMATION
  Report Type: Spontaneous
  Country: US (occurrence: US)
  Receive Date: 20140630
  Receipt Date: 20140630
  Transmission Date: 20141212
  Serious: No
  Sender: FDA-Public Use
  Company Number: US-BAYER-2014-097629

PATIENT
  Sex: 0

DRUGS (1)
  1. GADAVIST [Suspect]
     Indication: PRODUCT USED FOR UNKNOWN INDICATION
     Dosage: 6.5 ML, ONCE
     Dates: start: 20140624, end: 20140624

REACTIONS (1)
  - Nausea [Recovered/Resolved]
